FAERS Safety Report 24898547 (Version 2)
Quarter: 2025Q4

REPORT INFORMATION
  Report Type: Spontaneous
  Country: SG (occurrence: SG)
  Receive Date: 20250129
  Receipt Date: 20251117
  Transmission Date: 20260119
  Serious: Yes (Hospitalization, Other)
  Sender: AIPING PHARMACEUTICAL
  Company Number: SG-AIPING-2025AILIT00004

PATIENT
  Age: 8 Year
  Sex: Female

DRUGS (6)
  1. SULFAMETHOXAZOLE AND TRIMETHOPRIM [Suspect]
     Active Substance: SULFAMETHOXAZOLE\TRIMETHOPRIM
     Indication: Salmonella bacteraemia
     Dosage: 10 MG/KG/DAY FOR FOUR TO SIX WEEKS
     Route: 048
  2. SULFAMETHOXAZOLE AND TRIMETHOPRIM [Suspect]
     Active Substance: SULFAMETHOXAZOLE\TRIMETHOPRIM
     Indication: Osteomyelitis
  3. SULFAMETHOXAZOLE AND TRIMETHOPRIM [Suspect]
     Active Substance: SULFAMETHOXAZOLE\TRIMETHOPRIM
     Indication: Osteomyelitis
  4. DOXYCYCLINE [Concomitant]
     Active Substance: DOXYCYCLINE
     Indication: Queensland tick typhus
     Dosage: 4.4 MG/KG/DAY
     Route: 048
  5. CEFTRIAXONE [Concomitant]
     Active Substance: CEFTRIAXONE
     Indication: Mediastinitis
     Route: 042
  6. METRONIDAZOLE [Concomitant]
     Active Substance: METRONIDAZOLE
     Indication: Mediastinitis
     Route: 065

REACTIONS (2)
  - Pulmonary toxicity [Recovering/Resolving]
  - Off label use [Unknown]
